FAERS Safety Report 23093643 (Version 2)
Quarter: 2023Q4

REPORT INFORMATION
  Report Type: Spontaneous
  Country: JP (occurrence: JP)
  Receive Date: 20231023
  Receipt Date: 20231109
  Transmission Date: 20240110
  Serious: Yes (Other)
  Sender: FDA-Public Use
  Company Number: JP-SAKK-2023SA316471AA

PATIENT
  Age: 60 Year
  Sex: Male

DRUGS (1)
  1. DOCETAXEL [Suspect]
     Active Substance: DOCETAXEL\DOCETAXEL ANHYDROUS
     Indication: Prostate cancer
     Dosage: UNK
     Route: 041

REACTIONS (4)
  - Immunosuppression [Unknown]
  - Fournier^s gangrene [Recovering/Resolving]
  - Musculoskeletal pain [Recovering/Resolving]
  - Sepsis [Recovered/Resolved]
